FAERS Safety Report 4850681-3 (Version None)
Quarter: 2005Q4

REPORT INFORMATION
  Report Type: 
  Country: None (occurrence: None)
  Receive Date: 20051208
  Receipt Date: 20051128
  Transmission Date: 20060501
  Serious: Yes (Hospitalization)
  Sender: FDA-Public Use
  Company Number: US-2005-024981

PATIENT
  Age: 41 Year
  Sex: Female

DRUGS (6)
  1. BETASERON [Suspect]
     Indication: RELAPSING-REMITTING MULTIPLE SCLEROSIS
     Dosage: 8 MIU, EVERY 2D, SUBCUTANEOUS
     Route: 058
     Dates: start: 20050622
  2. ESZOPICLONE (ESZOPICLONE) [Concomitant]
  3. SEROQUEL [Concomitant]
  4. Q-GESIC [Concomitant]
  5. STRATTERA [Concomitant]
  6. VALIUM [Concomitant]

REACTIONS (8)
  - ABDOMINAL PAIN [None]
  - BREAST DISCHARGE [None]
  - CHILLS [None]
  - COLITIS [None]
  - CROHN'S DISEASE [None]
  - DIARRHOEA HAEMORRHAGIC [None]
  - MYALGIA [None]
  - PYREXIA [None]
